FAERS Safety Report 7714637-5 (Version None)
Quarter: 2011Q3

REPORT INFORMATION
  Report Type: 
  Country: None (occurrence: None)
  Receive Date: 20110822
  Receipt Date: 20110805
  Transmission Date: 20111222
  Serious: Yes (Death, Life-Threatening, Hospitalization)
  Sender: FDA-Public Use
  Company Number: 2011MA011401

PATIENT
  Age: 61 Year
  Sex: Male

DRUGS (2)
  1. METFORMIN HYDROCHLORIDE [Suspect]
     Indication: TYPE 2 DIABETES MELLITUS
  2. GLIMEPIRIDE [Suspect]
     Indication: TYPE 2 DIABETES MELLITUS

REACTIONS (10)
  - LACTIC ACIDOSIS [None]
  - PULMONARY CONGESTION [None]
  - MULTI-ORGAN FAILURE [None]
  - LEFT VENTRICULAR HYPERTROPHY [None]
  - HYPOTHERMIA [None]
  - CARDIAC ARREST [None]
  - LOSS OF CONSCIOUSNESS [None]
  - CONTINUOUS HAEMODIAFILTRATION [None]
  - VENTRICULAR FIBRILLATION [None]
  - BASE EXCESS [None]
